FAERS Safety Report 6559201-9 (Version None)
Quarter: 2010Q1

REPORT INFORMATION
  Report Type: 
  Country: None (occurrence: None)
  Receive Date: 20100129
  Receipt Date: 20090915
  Transmission Date: 20100710
  Serious: No
  Sender: FDA-Public Use
  Company Number: US-ABBOTT-07P-163-0356615-00

PATIENT
  Sex: Male
  Weight: 81.72 kg

DRUGS (3)
  1. HUMIRA [Suspect]
     Indication: PSORIATIC ARTHROPATHY
     Route: 058
     Dates: start: 20020112, end: 20090805
  2. PAXIL [Concomitant]
     Indication: ANXIETY
     Route: 048
  3. XANAX [Concomitant]
     Indication: ANXIETY
     Route: 048

REACTIONS (5)
  - CHEST PAIN [None]
  - HYPERHIDROSIS [None]
  - NIGHTMARE [None]
  - ORAL INFECTION [None]
  - PERIODONTAL DISEASE [None]
